FAERS Safety Report 24439568 (Version 3)
Quarter: 2025Q4

REPORT INFORMATION
  Report Type: Spontaneous
  Country: EU (occurrence: None)
  Receive Date: 20241015
  Receipt Date: 20251202
  Transmission Date: 20260117
  Serious: Yes (Hospitalization, Other)
  Sender: AMERICAN REGENT
  Company Number: EU-AMERICAN REGENT INC-2024003837

PATIENT
  Age: 31 Year
  Sex: Female
  Weight: 59 kg

DRUGS (1)
  1. FERINJECT [Suspect]
     Active Substance: FERRIC CARBOXYMALTOSE
     Indication: Iron deficiency anaemia
     Dosage: SINGLE (1000 MG,1 IN 1 TOTAL)
     Route: 041
     Dates: start: 20240326, end: 20240326

REACTIONS (6)
  - Premature delivery [Unknown]
  - Uterine hypertonus [Recovered/Resolved]
  - Respiratory distress [Unknown]
  - Maternal exposure during pregnancy [Unknown]
  - Malaise [Unknown]
  - Blood pressure decreased [Unknown]

NARRATIVE: CASE EVENT DATE: 20240326
